FAERS Safety Report 9945085 (Version 1)
Quarter: 2014Q1

REPORT INFORMATION
  Report Type: Report from Study
  Country: US (occurrence: US)
  Receive Date: 20140303
  Receipt Date: 20140303
  Transmission Date: 20141002
  Serious: Yes (Other)
  Sender: FDA-Public Use
  Company Number: US-ABBVIE-13P-163-1049074-00

PATIENT
  Age: 65 Year
  Sex: Female

DRUGS (8)
  1. HUMIRA [Suspect]
     Indication: RHEUMATOID ARTHRITIS
     Dates: start: 2011
  2. METFORMIN [Concomitant]
     Indication: DIABETES MELLITUS
     Dosage: 1000MG IN AM AND 500MG IN PM
  3. AMLODIPINE [Concomitant]
     Indication: HYPERTENSION
  4. BONIVA [Concomitant]
     Indication: OSTEOPOROSIS
  5. OYSCO [Concomitant]
     Indication: OSTEOPOROSIS
  6. VITAMIN D3 [Concomitant]
     Indication: PRODUCT USED FOR UNKNOWN INDICATION
  7. CITALOPRAM [Concomitant]
     Indication: DEPRESSION
  8. TYLENOL [Concomitant]
     Indication: PAIN
     Dosage: USUALLY 2-3 TIMES PER DAY

REACTIONS (2)
  - Breast cancer [Not Recovered/Not Resolved]
  - Malaise [Unknown]
